FAERS Safety Report 13379555 (Version 5)
Quarter: 2021Q4

REPORT INFORMATION
  Report Type: Spontaneous
  Country: FR (occurrence: FR)
  Receive Date: 20170328
  Receipt Date: 20211216
  Transmission Date: 20220303
  Serious: Yes (Hospitalization, Disabling, Congenital Anomaly, Other)
  Sender: FDA-Public Use
  Company Number: FR-ABBVIE-17P-056-1923595-00

PATIENT
  Sex: Male

DRUGS (3)
  1. VALPROATE SODIUM [Suspect]
     Active Substance: VALPROATE SODIUM
     Indication: Maternal exposure timing unspecified
     Route: 064
  2. VALPROATE SODIUM [Suspect]
     Active Substance: VALPROATE SODIUM
     Route: 064
     Dates: end: 19930720
  3. FOLIC ACID [Concomitant]
     Active Substance: FOLIC ACID
     Indication: Maternal exposure timing unspecified

REACTIONS (51)
  - Foot deformity [Unknown]
  - Knee deformity [Unknown]
  - Scoliosis [Unknown]
  - Oral disorder [Unknown]
  - Dysuria [Unknown]
  - Oral disorder [Unknown]
  - Gait disturbance [Unknown]
  - Dyslexia [Unknown]
  - Foetal anticonvulsant syndrome [Unknown]
  - Visual impairment [Unknown]
  - Dyspraxia [Unknown]
  - Aphasia [Unknown]
  - Epilepsy [Unknown]
  - Myopia [Unknown]
  - Overweight [Unknown]
  - Foetal growth restriction [Unknown]
  - Ear, nose and throat disorder [Unknown]
  - Language disorder [Recovering/Resolving]
  - Heart disease congenital [Unknown]
  - Ventricular septal defect [Recovered/Resolved]
  - Scaphocephaly [Recovered/Resolved]
  - Developmental delay [Unknown]
  - Enuresis [Unknown]
  - Inguinal hernia [Unknown]
  - Pectus excavatum [Unknown]
  - Cryptorchism [Unknown]
  - Hydrocele [Unknown]
  - Behaviour disorder [Unknown]
  - Educational problem [Unknown]
  - Anxiety [Unknown]
  - Arnold-Chiari malformation [Unknown]
  - Dysmorphism [Unknown]
  - Eyelid disorder [Unknown]
  - Dysmorphism [Unknown]
  - Oral disorder [Unknown]
  - Syndactyly [Unknown]
  - Brachydactyly [Unknown]
  - Autism spectrum disorder [Unknown]
  - Nightmare [Recovered/Resolved]
  - Somnambulism [Recovered/Resolved]
  - Foetal exposure during pregnancy [Unknown]
  - VIth nerve paralysis [Unknown]
  - Pulmonary hypertension [Unknown]
  - Social problem [Unknown]
  - Sleep disorder [Unknown]
  - Disorientation [Unknown]
  - Dysdiadochokinesis [Unknown]
  - Fine motor skill dysfunction [Unknown]
  - Developmental coordination disorder [Unknown]
  - Unevaluable event [Unknown]
  - Astigmatism [Unknown]

NARRATIVE: CASE EVENT DATE: 19950101
